FAERS Safety Report 15822723 (Version 1)
Quarter: 2019Q1

REPORT INFORMATION
  Report Type: Spontaneous
  Country: US (occurrence: US)
  Receive Date: 20190114
  Receipt Date: 20190114
  Transmission Date: 20190417
  Serious: No
  Sender: FDA-Public Use
  Company Number: US-ABBVIE-18K-163-2551322-00

PATIENT
  Age: 62 Year
  Sex: Female

DRUGS (3)
  1. VENCLEXTA [Suspect]
     Active Substance: VENETOCLAX
     Indication: MYELODYSPLASTIC SYNDROME
     Dosage: 1 TAB BY MOUTH DAILY FOR 14 DAYS THEN 14 DAYS OFF
     Route: 048
     Dates: start: 20181106
  2. VENCLEXTA [Suspect]
     Active Substance: VENETOCLAX
     Indication: BREAST CANCER FEMALE
  3. VENCLEXTA [Suspect]
     Active Substance: VENETOCLAX
     Indication: INVASIVE DUCTAL BREAST CARCINOMA

REACTIONS (1)
  - Intentional product use issue [Unknown]

NARRATIVE: CASE EVENT DATE: 201811
